FAERS Safety Report 24696762 (Version 1)
Quarter: 2024Q4

REPORT INFORMATION
  Report Type: Spontaneous
  Country: FR (occurrence: FR)
  Receive Date: 20241204
  Receipt Date: 20241204
  Transmission Date: 20250115
  Serious: Yes (Hospitalization)
  Sender: NORDIC PHARMA
  Company Number: None

PATIENT
  Age: 48 Year
  Sex: Female
  Weight: 80 kg

DRUGS (3)
  1. METHOTREXATE [Suspect]
     Active Substance: METHOTREXATE
     Indication: Uveitis
     Dosage: PUIS 10MG PAR SEMAINE A PARTIR DU 21/03/2023
     Route: 048
     Dates: start: 20220919, end: 20230320
  2. METHOTREXATE [Suspect]
     Active Substance: METHOTREXATE
     Indication: Uveitis
     Dosage: PUIS 10MG PAR SEMAINE A PARTIR DU 21/03/2023
     Route: 048
     Dates: start: 20230321, end: 20240103
  3. HUMIRA [Concomitant]
     Active Substance: ADALIMUMAB
     Indication: Uveitis
     Dosage: PUIS 40MG PAR SEMAINE A PARTIR DU 17/05/2023
     Route: 058
     Dates: start: 20230321, end: 20240103

REACTIONS (2)
  - Triple negative breast cancer [Not Recovered/Not Resolved]
  - Product use in unapproved indication [Unknown]

NARRATIVE: CASE EVENT DATE: 20231228
